FAERS Safety Report 4501854-0 (Version None)
Quarter: 2004Q4

REPORT INFORMATION
  Report Type: 
  Country: None (occurrence: None)
  Receive Date: 20041116
  Receipt Date: 20041108
  Transmission Date: 20050328
  Serious: Yes (Hospitalization)
  Sender: FDA-Public Use
  Company Number: US-JNJFOC-20041102240

PATIENT
  Sex: Female

DRUGS (7)
  1. DURAGESIC [Suspect]
     Route: 062
  2. DURAGESIC [Suspect]
     Route: 062
  3. DURAGESIC [Suspect]
     Route: 062
  4. DURAGESIC [Suspect]
     Route: 062
  5. DURAGESIC [Suspect]
     Route: 062
  6. DURAGESIC [Suspect]
     Route: 062
  7. DEPO-PROVERA [Concomitant]
     Route: 050

REACTIONS (3)
  - ADRENALITIS [None]
  - FATIGUE [None]
  - FEELING ABNORMAL [None]
